FAERS Safety Report 19407575 (Version 1)
Quarter: 2021Q2

REPORT INFORMATION
  Report Type: Spontaneous
  Country: US (occurrence: US)
  Receive Date: 20210611
  Receipt Date: 20210611
  Transmission Date: 20210717
  Serious: Yes (Other)
  Sender: FDA-Public Use
  Company Number: NVSC2021US130499

PATIENT
  Sex: Female

DRUGS (10)
  1. VIVELLE?DOT [Suspect]
     Active Substance: ESTRADIOL
     Indication: MENOPAUSE
     Dosage: UNK UNK, UNKNOWN
     Route: 062
  2. LUNESTA [Concomitant]
     Active Substance: ESZOPICLONE
     Indication: SLEEP APNOEA SYNDROME
  3. COMBIPATCH [Suspect]
     Active Substance: ESTRADIOL\NORETHINDRONE ACETATE
     Indication: MENOPAUSE
     Dosage: UNK UNK, UNKNOWN
     Route: 062
     Dates: start: 2010
  4. HYDROCORTISONE. [Concomitant]
     Active Substance: HYDROCORTISONE
     Indication: MENOPAUSE
     Dosage: UNK
     Route: 065
  5. COMBIPATCH [Suspect]
     Active Substance: ESTRADIOL\NORETHINDRONE ACETATE
     Indication: DYSPEPSIA
     Dosage: UNK
     Route: 062
     Dates: start: 2018
  6. VIVELLE?DOT [Suspect]
     Active Substance: ESTRADIOL
     Indication: DYSPEPSIA
  7. TRAZODONE [Concomitant]
     Active Substance: TRAZODONE HYDROCHLORIDE
     Indication: INSOMNIA
     Dosage: UNK
     Route: 065
  8. TESTOSTERONE. [Concomitant]
     Active Substance: TESTOSTERONE
     Indication: MENOPAUSE
     Dosage: UNK
     Route: 061
  9. LUNESTA [Concomitant]
     Active Substance: ESZOPICLONE
     Indication: INSOMNIA
     Dosage: UNK
     Route: 065
  10. TRAZODONE [Concomitant]
     Active Substance: TRAZODONE HYDROCHLORIDE
     Indication: SLEEP APNOEA SYNDROME

REACTIONS (11)
  - Reflux gastritis [Unknown]
  - Fatigue [Unknown]
  - Weight decreased [Unknown]
  - Poor quality sleep [Unknown]
  - Gastrooesophageal reflux disease [Unknown]
  - Blood oestrogen increased [Unknown]
  - Uterine leiomyoma [Unknown]
  - Bile acid malabsorption [Unknown]
  - Product quality issue [Unknown]
  - Abdominal distension [Unknown]
  - Vaginal haemorrhage [Unknown]
